FAERS Safety Report 8189245-5 (Version None)
Quarter: 2012Q1

REPORT INFORMATION
  Report Type: 
  Country: None (occurrence: None)
  Receive Date: 20120307
  Receipt Date: 20120223
  Transmission Date: 20120608
  Serious: Yes (Hospitalization)
  Sender: FDA-Public Use
  Company Number: DE-RANBAXY-2012R1-53370

PATIENT
  Age: 30 Year
  Sex: Male

DRUGS (9)
  1. GENTAMICIN [Suspect]
     Indication: ENDOCARDITIS BACTERIAL
     Route: 065
  2. TIGECYCLINE [Suspect]
     Indication: ANTIBIOTIC THERAPY
     Dosage: UNK
     Route: 065
  3. CEFTRIAXONE [Suspect]
     Indication: ANTIBIOTIC THERAPY
     Route: 065
  4. CEFUROXIME [Suspect]
     Indication: ANTIBIOTIC THERAPY
     Dosage: UNK
     Route: 065
  5. RIFAMPICIN [Suspect]
     Indication: ANTIBIOTIC THERAPY
     Dosage: UNK
     Route: 065
  6. VANCOMYCIN [Suspect]
     Indication: ENDOCARDITIS BACTERIAL
     Dosage: 0.5G,TID
     Route: 065
  7. LINEZOLID [Suspect]
     Indication: ANTIBIOTIC THERAPY
     Dosage: UNK
     Route: 065
  8. FLUCONAZOLE [Suspect]
     Indication: ANTIBIOTIC THERAPY
     Dosage: UNK
     Route: 065
  9. POTASSIUM PENICILLIN G [Suspect]
     Indication: ENDOCARDITIS BACTERIAL
     Dosage: UNK
     Route: 065

REACTIONS (1)
  - DRUG RASH WITH EOSINOPHILIA AND SYSTEMIC SYMPTOMS [None]
